FAERS Safety Report 20624738 (Version 1)
Quarter: 2022Q1

REPORT INFORMATION
  Report Type: Spontaneous
  Country: OM (occurrence: OM)
  Receive Date: 20220323
  Receipt Date: 20220323
  Transmission Date: 20220423
  Serious: Yes (Other)
  Sender: FDA-Public Use
  Company Number: OM-ABBVIE-22K-123-4326876-00

PATIENT
  Age: 72 Year
  Sex: Female

DRUGS (1)
  1. VALPROATE SODIUM [Suspect]
     Active Substance: VALPROATE SODIUM
     Indication: Product used for unknown indication
     Route: 065

REACTIONS (4)
  - Hallucination, visual [Unknown]
  - Disorientation [Unknown]
  - Restlessness [Unknown]
  - Mood altered [Unknown]
